FAERS Safety Report 4696238-9 (Version None)
Quarter: 2005Q2

REPORT INFORMATION
  Report Type: 
  Country: None (occurrence: None)
  Receive Date: 20050621
  Receipt Date: 20050513
  Transmission Date: 20051028
  Serious: Yes (Hospitalization, Other)
  Sender: FDA-Public Use
  Company Number: 2005GB00976

PATIENT
  Age: 23076 Day
  Sex: Female
  Weight: 68.2 kg

DRUGS (3)
  1. NOLVADEX [Suspect]
     Indication: BREAST CANCER
     Route: 048
     Dates: start: 19980425, end: 20030411
  2. VERAPAMIL [Concomitant]
     Indication: ATRIAL FIBRILLATION
     Dosage: PRE-TRIAL
  3. WARFARIN [Concomitant]
     Indication: ATRIAL FIBRILLATION
     Dosage: PRE-TRIAL

REACTIONS (2)
  - CHOLECYSTITIS CHRONIC [None]
  - CHOLELITHIASIS [None]
